FAERS Safety Report 6972377-4 (Version None)
Quarter: 2010Q3

REPORT INFORMATION
  Report Type: 
  Country: None (occurrence: None)
  Receive Date: 20100909
  Receipt Date: 20100903
  Transmission Date: 20110219
  Serious: Yes (Life-Threatening)
  Sender: FDA-Public Use
  Company Number: CH-JNJFOC-20100900895

PATIENT
  Age: 38 Year
  Sex: Male
  Weight: 113 kg

DRUGS (18)
  1. INVEGA [Suspect]
     Indication: DEPRESSION
     Route: 048
  2. INVEGA [Suspect]
     Route: 048
  3. VENLAFAXINE [Suspect]
     Indication: PRODUCT USED FOR UNKNOWN INDICATION
     Route: 048
  4. VENLAFAXINE [Suspect]
     Dosage: 150 - 300 MG
     Route: 048
  5. VENLAFAXINE [Suspect]
     Route: 048
  6. LITHIOFOR [Suspect]
     Indication: PRODUCT USED FOR UNKNOWN INDICATION
     Route: 048
  7. LITHIOFOR [Suspect]
     Dosage: 330 - 660 MG
     Route: 048
  8. WELLBUTRIN [Suspect]
     Indication: PRODUCT USED FOR UNKNOWN INDICATION
     Route: 048
  9. WELLBUTRIN [Suspect]
     Route: 048
  10. LORAZEPAM [Suspect]
     Indication: PRODUCT USED FOR UNKNOWN INDICATION
     Route: 048
  11. LORAZEPAM [Suspect]
     Dosage: 4.5 - 7.5 MG
     Route: 048
  12. LORAZEPAM [Suspect]
     Route: 048
  13. LORAZEPAM [Suspect]
     Route: 048
  14. PANTOPRAZOLE SODIUM [Suspect]
     Indication: PRODUCT USED FOR UNKNOWN INDICATION
     Route: 048
  15. LYRICA [Suspect]
     Indication: PRODUCT USED FOR UNKNOWN INDICATION
     Route: 048
  16. LYRICA [Suspect]
     Route: 048
  17. NOZINAN [Concomitant]
     Dosage: 50-100 MG DAILY
  18. FRAXIPARINE [Concomitant]

REACTIONS (5)
  - ARTERIAL THROMBOSIS LIMB [None]
  - BLOOD CREATININE INCREASED [None]
  - DEPRESSION SUICIDAL [None]
  - OFF LABEL USE [None]
  - PULMONARY EMBOLISM [None]
